FAERS Safety Report 6617063-5 (Version None)
Quarter: 2010Q1

REPORT INFORMATION
  Report Type: 
  Country: None (occurrence: None)
  Receive Date: 20100307
  Receipt Date: 20100222
  Transmission Date: 20100710
  Serious: Yes (Hospitalization)
  Sender: FDA-Public Use
  Company Number: AR-ELI_LILLY_AND_COMPANY-AR201002007235

PATIENT
  Age: 55 Year
  Sex: Female

DRUGS (8)
  1. CYMBALTA [Suspect]
     Dosage: 30 MG, DAILY (1/D)
     Route: 065
     Dates: end: 20090901
  2. CYMBALTA [Suspect]
     Dosage: 60 MG, DAILY (1/D)
     Route: 065
     Dates: start: 20090901, end: 20091201
  3. CYMBALTA [Suspect]
     Dosage: 120 MG, DAILY (1/D)
     Route: 065
     Dates: start: 20091201, end: 20091201
  4. CYMBALTA [Suspect]
     Dosage: 30 MG, DAILY (1/D)
     Route: 065
     Dates: start: 20100120, end: 20100101
  5. CLONAZEPAM [Concomitant]
     Dosage: UNK, UNK
     Dates: start: 20100101
  6. PAROXETINE HCL [Concomitant]
     Dates: start: 20100101
  7. CHEMOTHERAPEUTICS NOS [Concomitant]
     Indication: RECTAL CANCER
     Dosage: UNK, 3/W
  8. CHEMOTHERAPEUTICS NOS [Concomitant]
     Dosage: UNK, WEEKLY (1/W)

REACTIONS (2)
  - HYPERSENSITIVITY [None]
  - THERAPY RESPONDER [None]
